FAERS Safety Report 7329704-8 (Version None)
Quarter: 2011Q1

REPORT INFORMATION
  Report Type: 
  Country: None (occurrence: None)
  Receive Date: 20110303
  Receipt Date: 20110221
  Transmission Date: 20110831
  Serious: Yes (Hospitalization, Other)
  Sender: FDA-Public Use
  Company Number: DE-B.I. PHARMACEUTICALS,INC./RIDGEFIELD-2011-DE-01462BY

PATIENT
  Sex: Male

DRUGS (2)
  1. RAMIPRIL [Concomitant]
  2. TELMISARTAN/HYDROCHLOROTHIAZIDE [Suspect]
     Dosage: RT: UNK
     Route: 065
     Dates: start: 20110101

REACTIONS (2)
  - EXTRASYSTOLES [None]
  - ARRHYTHMIA [None]
